FAERS Safety Report 15791256 (Version 5)
Quarter: 2019Q1

REPORT INFORMATION
  Report Type: Report from Study
  Country: CO (occurrence: CO)
  Receive Date: 20190104
  Receipt Date: 20190219
  Transmission Date: 20190417
  Serious: Yes (Hospitalization, Congenital Anomaly, Other)
  Sender: FDA-Public Use
  Company Number: CO-ALEXION-A201817124

PATIENT
  Age: 1 Month
  Sex: Female
  Weight: 1820 kg

DRUGS (1)
  1. SOLIRIS [Suspect]
     Active Substance: ECULIZUMAB
     Indication: PRODUCT USED FOR UNKNOWN INDICATION
     Dosage: UNK
     Route: 064

REACTIONS (9)
  - Inguinal hernia [Unknown]
  - Retinopathy of prematurity [Not Recovered/Not Resolved]
  - Umbilical hernia [Unknown]
  - Maternal exposure during breast feeding [Unknown]
  - Premature baby [Unknown]
  - Respiratory distress [Unknown]
  - Metabolic disorder [Unknown]
  - Neonatal respiratory distress syndrome [Unknown]
  - Weight decreased [Unknown]

NARRATIVE: CASE EVENT DATE: 20190122
